FAERS Safety Report 10602155 (Version 1)
Quarter: 2014Q4

REPORT INFORMATION
  Report Type: Spontaneous
  Country: JP (occurrence: None)
  Receive Date: 20141120
  Receipt Date: 20141120
  Transmission Date: 20150529
  Serious: Yes (Hospitalization)
  Sender: FDA-Public Use
  Company Number: 2014SAQ151553

PATIENT
  Age: 74 Year
  Sex: Male
  Weight: 56.9 kg

DRUGS (10)
  1. PLAVIX [Suspect]
     Active Substance: CLOPIDOGREL BISULFATE
     Route: 048
  2. COMPLAVIN [Concomitant]
     Active Substance: ASPIRIN\CLOPIDOGREL BISULFATE
  3. ARTIST [Concomitant]
     Active Substance: CARVEDILOL
  4. SPIRONOLACTONE. [Concomitant]
     Active Substance: SPIRONOLACTONE
  5. NICORANDIL [Concomitant]
     Active Substance: NICORANDIL
  6. TRAZENTA [Concomitant]
     Active Substance: LINAGLIPTIN
  7. IMIDAPRIL [Concomitant]
     Active Substance: IMIDAPRIL
  8. DIART [Concomitant]
     Active Substance: AZOSEMIDE
  9. NEXIUM [Suspect]
     Active Substance: ESOMEPRAZOLE MAGNESIUM
     Indication: PROPHYLAXIS
     Route: 048
     Dates: start: 20140912, end: 20141025
  10. LIPITOR [Suspect]
     Active Substance: ATORVASTATIN CALCIUM
     Indication: ANGINA UNSTABLE
     Route: 048
     Dates: start: 20140912, end: 20141025

REACTIONS (6)
  - Hepatic function abnormal [None]
  - Liver disorder [None]
  - Pyrexia [None]
  - Jaundice [None]
  - Hepatomegaly [None]
  - Loss of consciousness [None]

NARRATIVE: CASE EVENT DATE: 20141025
